FAERS Safety Report 10644850 (Version 2)
Quarter: 2015Q2

REPORT INFORMATION
  Report Type: Spontaneous
  Country: JP (occurrence: JP)
  Receive Date: 20141211
  Receipt Date: 20150406
  Transmission Date: 20150821
  Serious: Yes (Other)
  Sender: FDA-Public Use
  Company Number: JP-AMGEN-JPNSP2014096116

PATIENT
  Age: 49 Year
  Sex: Female
  Weight: 58 kg

DRUGS (7)
  1. LOXOPROFEN                         /00890702/ [Concomitant]
     Active Substance: LOXOPROFEN
     Indication: ANALGESIC THERAPY
     Dosage: 60 MG, QD
     Route: 048
     Dates: start: 20141023, end: 20141027
  2. GRAN [Suspect]
     Active Substance: FILGRASTIM
     Dosage: 300 MUG, QD
     Route: 058
     Dates: start: 20141026, end: 20141026
  3. GRAN [Suspect]
     Active Substance: FILGRASTIM
     Indication: STEM CELL DONOR
     Dosage: 600 MUG, QD
     Route: 058
     Dates: start: 20141023, end: 20141023
  4. CRESTOR [Concomitant]
     Active Substance: ROSUVASTATIN CALCIUM
     Indication: HYPERLIPIDAEMIA
     Dosage: 2.5 MG, QD
     Route: 048
     Dates: start: 20141024, end: 20141029
  5. GRAN [Suspect]
     Active Substance: FILGRASTIM
     Dosage: 300 MUG, BID
     Route: 058
     Dates: start: 20141024, end: 20141025
  6. ULCERLMIN [Concomitant]
     Active Substance: SUCRALFATE
     Dosage: 1 G, QD
     Route: 048
     Dates: start: 20141023, end: 20141027
  7. AMLODIPINE BESILATE [Concomitant]
     Active Substance: AMLODIPINE BESYLATE
     Indication: HYPERTENSION
     Dosage: 2.5 MG, QD
     Route: 048
     Dates: start: 20141024, end: 20141029

REACTIONS (2)
  - Decreased appetite [Recovered/Resolved]
  - Nausea [Recovered/Resolved]

NARRATIVE: CASE EVENT DATE: 20141025
